FAERS Safety Report 7927983-7 (Version None)
Quarter: 2011Q4

REPORT INFORMATION
  Report Type: 
  Country: None (occurrence: None)
  Receive Date: 20111118
  Receipt Date: 20111116
  Transmission Date: 20120403
  Serious: Yes (Death, Life-Threatening, Hospitalization, Disabling)
  Sender: FDA-Public Use
  Company Number: PH-SANOFI-AVENTIS-2011SA075588

PATIENT
  Age: 68 Year
  Sex: Female
  Weight: 52 kg

DRUGS (4)
  1. DOCETAXEL [Suspect]
     Dosage: FORM: VIAL
     Route: 042
     Dates: start: 20101026, end: 20101116
  2. CIPRO [Concomitant]
     Dates: start: 20101026, end: 20101102
  3. TRASTUZUMAB [Suspect]
     Route: 042
     Dates: start: 20101026, end: 20101116
  4. DOCETAXEL [Suspect]
     Dosage: FORM: VIAL
     Route: 042
     Dates: start: 20101026, end: 20101116

REACTIONS (5)
  - FEBRILE NEUTROPENIA [None]
  - GASTROINTESTINAL ULCER [None]
  - PNEUMONIA [None]
  - DUODENAL ULCER [None]
  - HEPATITIS VIRAL [None]
